FAERS Safety Report 20495852 (Version 2)
Quarter: 2022Q2

REPORT INFORMATION
  Report Type: Spontaneous
  Country: CA (occurrence: CA)
  Receive Date: 20220221
  Receipt Date: 20220405
  Transmission Date: 20220721
  Serious: Yes (Life-Threatening)
  Sender: FDA-Public Use
  Company Number: CA-NOVARTISPH-NVSC2022CA038378

PATIENT
  Sex: Female

DRUGS (4)
  1. AIMOVIG [Suspect]
     Active Substance: ERENUMAB-AOOE
     Indication: Migraine
     Dosage: UNK
     Route: 065
     Dates: start: 2017
  2. SANDOSTATIN [Suspect]
     Active Substance: OCTREOTIDE ACETATE
     Indication: Neuroendocrine tumour
     Dosage: UNK
     Route: 065
     Dates: start: 2006
  3. SANDOSTATIN [Suspect]
     Active Substance: OCTREOTIDE ACETATE
  4. SANDOSTATIN [Suspect]
     Active Substance: OCTREOTIDE ACETATE

REACTIONS (8)
  - Loss of consciousness [Unknown]
  - Dizziness [Unknown]
  - Blood pressure decreased [Unknown]
  - Abdominal pain [Unknown]
  - Feeling cold [Unknown]
  - Feeling abnormal [Unknown]
  - Pruritus [Unknown]
  - Hypersensitivity [Unknown]
